FAERS Safety Report 4714037-6 (Version None)
Quarter: 2005Q3

REPORT INFORMATION
  Report Type: 
  Country: None (occurrence: None)
  Receive Date: 20050713
  Receipt Date: 20050628
  Transmission Date: 20060218
  Serious: Yes (Death)
  Sender: FDA-Public Use
  Company Number: 2005S1005598

PATIENT
  Age: 78 Year
  Sex: Female

DRUGS (8)
  1. CLOZAPINE [Suspect]
     Indication: SCHIZOPHRENIA
     Dosage: 300 MG;HS;PO
     Route: 048
     Dates: start: 20040824, end: 20050501
  2. MIRTAZAPINE [Concomitant]
  3. LISINOPRIL [Concomitant]
  4. ASPIRIN [Concomitant]
  5. ESCITALOPRAM OXALATE [Concomitant]
  6. LANSOPRAZOLE [Concomitant]
  7. CARVEDILOL [Concomitant]
  8. DOCUSATE SODIUM [Concomitant]

REACTIONS (1)
  - DEATH [None]
